FAERS Safety Report 6805250-2 (Version None)
Quarter: 2010Q2

REPORT INFORMATION
  Report Type: 
  Country: None (occurrence: None)
  Receive Date: 20100628
  Receipt Date: 20071115
  Transmission Date: 20101027
  Serious: Yes (Other)
  Sender: FDA-Public Use
  Company Number: US-PFIZER INC-2007077970

PATIENT
  Sex: Female
  Weight: 93.181 kg

DRUGS (4)
  1. PROCARDIA XL [Suspect]
     Indication: HYPERTENSION
     Route: 048
     Dates: start: 19920101, end: 20070917
  2. PLAVIX [Concomitant]
  3. ASPIRINE [Concomitant]
  4. ZETIA [Concomitant]

REACTIONS (3)
  - BLOOD CHOLESTEROL INCREASED [None]
  - CHEST PAIN [None]
  - HEART RATE INCREASED [None]
